FAERS Safety Report 18437946 (Version 1)
Quarter: 2020Q4

REPORT INFORMATION
  Report Type: Spontaneous
  Country: CH (occurrence: CH)
  Receive Date: 20201029
  Receipt Date: 20201029
  Transmission Date: 20210114
  Serious: Yes (Hospitalization, Other)
  Sender: FDA-Public Use
  Company Number: CH-AMGEN-CHESP2020171377

PATIENT
  Age: 86 Year
  Sex: Female

DRUGS (5)
  1. CINACALCET HCL [Suspect]
     Active Substance: CINACALCET HYDROCHLORIDE
     Indication: HYPERPARATHYROIDISM PRIMARY
     Dosage: 30 MILLIGRAM, QD
     Route: 065
     Dates: start: 201705
  2. CALCIUM [Concomitant]
     Active Substance: CALCIUM
     Dosage: 1.43 MILLIMOLE PER LITER
     Dates: start: 20130530
  3. PROLIA [Suspect]
     Active Substance: DENOSUMAB
     Indication: OSTEOPOROSIS
     Dosage: 60 MILLIGRAM, Q6MO
     Route: 058
     Dates: start: 20130530
  4. CINACALCET HCL [Suspect]
     Active Substance: CINACALCET HYDROCHLORIDE
     Indication: HYPERCALCAEMIA
     Dosage: 15 MILLIGRAM, QD
     Route: 065
     Dates: start: 201705
  5. 25-HYDROXYVITAMIN D3 [Concomitant]
     Active Substance: CALCIFEDIOL ANHYDROUS
     Dosage: 44 NMOL/L

REACTIONS (12)
  - General physical health deterioration [Unknown]
  - Dyspepsia [Unknown]
  - Weight decreased [Unknown]
  - Blood 25-hydroxycholecalciferol increased [Unknown]
  - Therapeutic product effect incomplete [Unknown]
  - Spinal fracture [Unknown]
  - Rebound effect [Unknown]
  - Hypercalcaemia [Recovered/Resolved]
  - Confusional state [Unknown]
  - Malnutrition [Unknown]
  - Renal impairment [Unknown]
  - Asthenia [Unknown]

NARRATIVE: CASE EVENT DATE: 201707
